FAERS Safety Report 5455575-0 (Version None)
Quarter: 2007Q3

REPORT INFORMATION
  Report Type: 
  Country: None (occurrence: None)
  Receive Date: 20070918
  Receipt Date: 20070425
  Transmission Date: 20080115
  Serious: Yes (Disabling)
  Sender: FDA-Public Use
  Company Number: US-ASTRAZENECA-2006UW21808

PATIENT
  Age: 547 Month
  Sex: Male
  Weight: 88.6 kg

DRUGS (5)
  1. SEROQUEL [Suspect]
     Indication: NERVOUSNESS
     Route: 048
     Dates: start: 20020101
  2. SEROQUEL [Suspect]
     Indication: DEPRESSION
     Route: 048
     Dates: start: 20020101
  3. CLOZARIL [Concomitant]
  4. LORAZEPAM [Concomitant]
  5. SERTRALINE [Concomitant]

REACTIONS (1)
  - DIABETES MELLITUS [None]
